FAERS Safety Report 5125980-0 (Version None)
Quarter: 2006Q4

REPORT INFORMATION
  Report Type: 
  Country: None (occurrence: None)
  Receive Date: 20061012
  Receipt Date: 20061005
  Transmission Date: 20070319
  Serious: Yes (Hospitalization, Other)
  Sender: FDA-Public Use
  Company Number: US-BRISTOL-MYERS SQUIBB COMPANY-13532197

PATIENT
  Sex: Male

DRUGS (3)
  1. ERBITUX [Suspect]
     Indication: NEOPLASM MALIGNANT
     Route: 042
  2. BENADRYL [Concomitant]
     Indication: PREMEDICATION
  3. STEROIDS [Concomitant]
     Indication: PREMEDICATION

REACTIONS (4)
  - BLOOD PRESSURE DECREASED [None]
  - CHEST DISCOMFORT [None]
  - DYSPEPSIA [None]
  - OXYGEN SATURATION DECREASED [None]
